FAERS Safety Report 5121091-9 (Version None)
Quarter: 2006Q4

REPORT INFORMATION
  Report Type: 
  Country: None (occurrence: None)
  Receive Date: 20061005
  Receipt Date: 20060609
  Transmission Date: 20070319
  Serious: Yes (Other)
  Sender: FDA-Public Use
  Company Number: BE-BRISTOL-MYERS SQUIBB COMPANY-13414628

PATIENT
  Age: 65 Year
  Sex: Male

DRUGS (4)
  1. ATAZANAVIR [Suspect]
     Dosage: DOSE DECREASED FROM 300 MG/DAY TO 150 MG/DAY ON 07-JUN-2006.
     Route: 048
     Dates: start: 20060607
  2. VIREAD [Suspect]
     Dates: start: 20030425, end: 20060607
  3. EPIVIR [Concomitant]
     Dates: start: 19970507
  4. NORVIR [Concomitant]
     Dates: start: 20031105

REACTIONS (2)
  - NEPHROLITHIASIS [None]
  - RENAL FAILURE [None]
